FAERS Safety Report 19088186 (Version 1)
Quarter: 2021Q2

REPORT INFORMATION
  Report Type: Report from Study
  Country: FR (occurrence: FR)
  Receive Date: 20210402
  Receipt Date: 20210402
  Transmission Date: 20210717
  Serious: Yes (Death, Other)
  Sender: FDA-Public Use
  Company Number: FR-GLAXOSMITHKLINE-FR2021EME073063

PATIENT
  Sex: Female
  Weight: 94 kg

DRUGS (1)
  1. NIRAPARIB [Suspect]
     Active Substance: NIRAPARIB
     Indication: OVARIAN CANCER
     Dosage: 200 MG, QD
     Route: 048
     Dates: start: 20201117

REACTIONS (2)
  - Death [Fatal]
  - Therapy cessation [Unknown]

NARRATIVE: CASE EVENT DATE: 20210125
